FAERS Safety Report 20360529 (Version 1)
Quarter: 2022Q1

REPORT INFORMATION
  Report Type: Spontaneous
  Country: TR (occurrence: TR)
  Receive Date: 20220121
  Receipt Date: 20220121
  Transmission Date: 20220424
  Serious: Yes (Life-Threatening, Hospitalization, Other)
  Sender: FDA-Public Use
  Company Number: TR-BRISTOL-MYERS SQUIBB COMPANY-BMS-2022-007903

PATIENT
  Age: 70 Year
  Sex: Female

DRUGS (1)
  1. ORENCIA [Suspect]
     Active Substance: ABATACEPT
     Indication: Rheumatoid arthritis
     Dosage: 10 MILLIGRAM/KILOGRAM IN 15 DAY INTERVALS(A TOTAL OF TWO DOSES)
     Route: 065

REACTIONS (2)
  - Acute respiratory failure [Unknown]
  - Off label use [Unknown]
